FAERS Safety Report 7995974 (Version 3)
Quarter: 2013Q2

REPORT INFORMATION
  Report Type: Spontaneous
  Country: US (occurrence: US)
  Receive Date: 20110617
  Receipt Date: 20130603
  Transmission Date: 20140414
  Serious: Yes (Other)
  Sender: FDA-Public Use
  Company Number: US-ROCHE-734193

PATIENT
  Age: 23 Year
  Sex: Male
  Weight: 77.1 kg

DRUGS (5)
  1. ACCUTANE [Suspect]
     Indication: ACNE
     Route: 065
     Dates: start: 199603, end: 199610
  2. ACCUTANE [Suspect]
     Route: 065
     Dates: start: 19970806, end: 19971015
  3. ACCUTANE [Suspect]
     Route: 065
  4. ACCUTANE [Suspect]
     Route: 065
  5. ACCUTANE [Suspect]
     Route: 065

REACTIONS (7)
  - Inflammatory bowel disease [Unknown]
  - Crohn^s disease [Unknown]
  - Gastrointestinal injury [Unknown]
  - Depression [Unknown]
  - Large intestine polyp [Unknown]
  - Dry skin [Not Recovered/Not Resolved]
  - Cheilitis [Unknown]
